FAERS Safety Report 7399311-X (Version None)
Quarter: 2011Q1

REPORT INFORMATION
  Report Type: 
  Country: None (occurrence: None)
  Receive Date: 20110329
  Receipt Date: 20110224
  Transmission Date: 20110831
  Serious: Yes (Other)
  Sender: FDA-Public Use
  Company Number: 2011SP009248

PATIENT
  Sex: Male

DRUGS (1)
  1. ETHINYL ESTRADIOL TAB [Suspect]
     Indication: PROSTATE CANCER
     Dosage: 1.5 MG;QD

REACTIONS (3)
  - HEPATIC ENZYME INCREASED [None]
  - DECREASED APPETITE [None]
  - CARDIAC FAILURE [None]
